FAERS Safety Report 13338394 (Version 1)
Quarter: 2017Q1

REPORT INFORMATION
  Report Type: Report from Study
  Country: None (occurrence: US)
  Receive Date: 20170315
  Receipt Date: 20170315
  Transmission Date: 20170428
  Serious: Yes (Hospitalization, Other)
  Sender: FDA-Public Use
  Company Number: US-ABBVIE-17K-163-1900487-00

PATIENT
  Sex: Male

DRUGS (1)
  1. HUMIRA [Suspect]
     Active Substance: ADALIMUMAB
     Indication: ANKYLOSING SPONDYLITIS
     Route: 058

REACTIONS (9)
  - Hyperchlorhydria [Unknown]
  - Dysphonia [Unknown]
  - Pharyngeal polyp [Unknown]
  - Chest pain [Unknown]
  - Weight decreased [Unknown]
  - Pain [Unknown]
  - Cough [Unknown]
  - Neck pain [Unknown]
  - Pancreatitis [Unknown]
